FAERS Safety Report 15949859 (Version 7)
Quarter: 2024Q2

REPORT INFORMATION
  Report Type: Spontaneous
  Country: US (occurrence: US)
  Receive Date: 20190211
  Receipt Date: 20240403
  Transmission Date: 20240715
  Serious: Yes (Other)
  Sender: FDA-Public Use
  Company Number: US-PFIZER INC-2019059821

PATIENT
  Age: 70 Year
  Sex: Female

DRUGS (1)
  1. XELJANZ [Suspect]
     Active Substance: TOFACITINIB CITRATE
     Dosage: 5 MG, 2X/DAY (BID)

REACTIONS (10)
  - Fall [Unknown]
  - Wrist fracture [Unknown]
  - Chronic kidney disease [Unknown]
  - Memory impairment [Unknown]
  - Peripheral swelling [Unknown]
  - Arthritis [Unknown]
  - Gait disturbance [Unknown]
  - Back pain [Unknown]
  - Exercise tolerance decreased [Unknown]
  - Arthralgia [Not Recovered/Not Resolved]

NARRATIVE: CASE EVENT DATE: 20221001
